FAERS Safety Report 4932080-9 (Version None)
Quarter: 2006Q1

REPORT INFORMATION
  Report Type: 
  Country: None (occurrence: None)
  Receive Date: 20060228
  Receipt Date: 20060210
  Transmission Date: 20060701
  Serious: No
  Sender: FDA-Public Use
  Company Number: GB200601005244

PATIENT
  Age: 42 Year
  Sex: Female

DRUGS (1)
  1. ZYPREXA [Suspect]
     Indication: SCHIZOPHRENIA
     Dosage: 15 MG, DAILY (1/D), ORAL
     Route: 048
     Dates: start: 20030101

REACTIONS (2)
  - NEUTROPHIL COUNT INCREASED [None]
  - WHITE BLOOD CELL COUNT INCREASED [None]
